FAERS Safety Report 6827983-4 (Version None)
Quarter: 2010Q3

REPORT INFORMATION
  Report Type: 
  Country: None (occurrence: None)
  Receive Date: 20100709
  Receipt Date: 20100701
  Transmission Date: 20110219
  Serious: Yes (Death)
  Sender: FDA-Public Use
  Company Number: A0869122A

PATIENT
  Age: 54 Year
  Sex: Male

DRUGS (1)
  1. AVANDIA [Suspect]
     Dates: start: 19991101, end: 20020601

REACTIONS (2)
  - DEATH [None]
  - MYOCARDIAL INFARCTION [None]
